FAERS Safety Report 5273479-3 (Version None)
Quarter: 2007Q1

REPORT INFORMATION
  Report Type: 
  Country: None (occurrence: None)
  Receive Date: 20061219
  Receipt Date: 20060925
  Transmission Date: 20070707
  Serious: Yes (Hospitalization, Other)
  Sender: FDA-Public Use
  Company Number: US-JNJFOC-20060602035

PATIENT
  Age: 25 Year
  Sex: Female
  Weight: 101.6057 kg

DRUGS (1)
  1. ORTHO EVRA [Suspect]
     Indication: CONTRACEPTION
     Dosage: TRANSDERMAL
     Route: 062
     Dates: start: 20030301, end: 20030601

REACTIONS (3)
  - DEPRESSION [None]
  - PNEUMONIA [None]
  - PULMONARY EMBOLISM [None]
